FAERS Safety Report 18904027 (Version 5)
Quarter: 2021Q1

REPORT INFORMATION
  Report Type: Report from Study
  Country: US (occurrence: US)
  Receive Date: 20210217
  Receipt Date: 20210331
  Transmission Date: 20210420
  Serious: Yes (Hospitalization, Other)
  Sender: FDA-Public Use
  Company Number: US-GLAXOSMITHKLINE-US2021038362

PATIENT
  Sex: Female

DRUGS (1)
  1. BELANTAMAB MAFODOTIN. [Suspect]
     Active Substance: BELANTAMAB MAFODOTIN
     Indication: PRODUCT USED FOR UNKNOWN INDICATION
     Dosage: UNK
     Dates: start: 20210107

REACTIONS (13)
  - Dyspnoea [Unknown]
  - Product dose omission issue [Unknown]
  - Decreased appetite [Unknown]
  - Pneumonia [Unknown]
  - Keratopathy [Unknown]
  - Weight decreased [Unknown]
  - Fatigue [Unknown]
  - Oropharyngeal pain [Recovered/Resolved]
  - White blood cell count decreased [Unknown]
  - Spinal compression fracture [Unknown]
  - Vision blurred [Unknown]
  - Headache [Recovered/Resolved]
  - Visual acuity reduced [Unknown]
